FAERS Safety Report 6484219-4 (Version None)
Quarter: 2009Q4

REPORT INFORMATION
  Report Type: 
  Country: None (occurrence: None)
  Receive Date: 20091209
  Receipt Date: 20091202
  Transmission Date: 20100525
  Serious: Yes (Life-Threatening, Hospitalization)
  Sender: FDA-Public Use
  Company Number: B0541967B

PATIENT
  Sex: Female
  Weight: 63 kg

DRUGS (4)
  1. LAPATINIB [Suspect]
     Indication: BREAST CANCER
     Route: 048
     Dates: start: 20080519
  2. MYOCET [Suspect]
     Indication: BREAST CANCER
     Dosage: 60MG THREE TIMES PER WEEK
     Route: 042
     Dates: start: 20080826
  3. PACLITAXEL [Suspect]
     Indication: BREAST CANCER
     Dosage: 175MG EVERY 3 WEEKS
     Route: 042
     Dates: start: 20080826
  4. LOPERAMIDE [Concomitant]

REACTIONS (5)
  - CYTOMEGALOVIRUS VIRAEMIA [None]
  - DIARRHOEA [None]
  - INFECTION [None]
  - NEUTROPENIA [None]
  - PYREXIA [None]
